FAERS Safety Report 8398755-7 (Version None)
Quarter: 2012Q2

REPORT INFORMATION
  Report Type: 
  Country: None (occurrence: None)
  Receive Date: 20120531
  Receipt Date: 20120528
  Transmission Date: 20120825
  Serious: Yes (Hospitalization)
  Sender: FDA-Public Use
  Company Number: PHHY2012GR042412

PATIENT
  Sex: Female

DRUGS (3)
  1. AROMASIN [Concomitant]
     Indication: BREAST CANCER
     Dosage: 1 DF, QD
     Dates: start: 20120410
  2. KONAKION [Concomitant]
     Dosage: 10 MG, UNK
  3. AFINITOR [Suspect]
     Indication: BREAST CANCER
     Dosage: 10 MG, QD
     Route: 048
     Dates: start: 20120410

REACTIONS (6)
  - GENERAL PHYSICAL HEALTH DETERIORATION [None]
  - DECREASED APPETITE [None]
  - VOMITING [None]
  - DYSPNOEA [None]
  - NAUSEA [None]
  - APHAGIA [None]
